FAERS Safety Report 12843300 (Version 1)
Quarter: 2016Q4

REPORT INFORMATION
  Report Type: Spontaneous
  Country: US (occurrence: US)
  Receive Date: 20161013
  Receipt Date: 20161013
  Transmission Date: 20170207
  Serious: No
  Sender: FDA-Public Use
  Company Number: US-ACTAVIS-2015-19437

PATIENT
  Age: 53 Year
  Sex: Female

DRUGS (1)
  1. GABAPENTIN (AELLC) [Suspect]
     Active Substance: GABAPENTIN
     Indication: PAIN
     Dosage: 2 CAPSULES AT BEDTIME
     Route: 065

REACTIONS (3)
  - Feeling abnormal [Unknown]
  - Dysarthria [Unknown]
  - Memory impairment [Unknown]

NARRATIVE: CASE EVENT DATE: 20090601
